FAERS Safety Report 4535217-9 (Version None)
Quarter: 2004Q4

REPORT INFORMATION
  Report Type: 
  Country: None (occurrence: None)
  Receive Date: 20041214
  Receipt Date: 20041011
  Transmission Date: 20050328
  Serious: No
  Sender: FDA-Public Use
  Company Number: 2004238492US

PATIENT
  Sex: Female

DRUGS (1)
  1. BEXTRA [Suspect]
     Indication: SCIATICA
     Dosage: 10 MG, QD, ORAL
     Route: 048
     Dates: start: 20041001

REACTIONS (3)
  - MOTOR DYSFUNCTION [None]
  - MUSCULOSKELETAL STIFFNESS [None]
  - THERAPEUTIC PRODUCT INEFFECTIVE [None]
